FAERS Safety Report 6754812-X (Version None)
Quarter: 2010Q2

REPORT INFORMATION
  Report Type: 
  Country: None (occurrence: None)
  Receive Date: 20100527
  Receipt Date: 20100511
  Transmission Date: 20101027
  Serious: Yes (Hospitalization, Disabling)
  Sender: FDA-Public Use
  Company Number: BCN-AS-2010-RR-139

PATIENT
  Age: 70 Year
  Sex: Male

DRUGS (3)
  1. ASPIRIN [Suspect]
     Dosage: 300 MG
  2. MEROPENEM [Concomitant]
  3. TEICOPLANIN [Concomitant]

REACTIONS (11)
  - CELLULITIS [None]
  - COAGULATION TIME PROLONGED [None]
  - DECREASED APPETITE [None]
  - DRUG INTERACTION [None]
  - EYE PAIN [None]
  - HEADACHE [None]
  - HYPHAEMA [None]
  - INTERNATIONAL NORMALISED RATIO INCREASED [None]
  - INTRAOCULAR PRESSURE INCREASED [None]
  - NAUSEA [None]
  - NO THERAPEUTIC RESPONSE [None]
